FAERS Safety Report 14290066 (Version 1)
Quarter: 2017Q4

REPORT INFORMATION
  Report Type: Spontaneous
  Country: US (occurrence: US)
  Receive Date: 20171215
  Receipt Date: 20171215
  Transmission Date: 20180321
  Serious: No
  Sender: FDA-Public Use
  Company Number: US-TEVA-778973ACC

PATIENT
  Sex: Female

DRUGS (4)
  1. NORTHERA [Suspect]
     Active Substance: DROXIDOPA
     Dosage: 600 MILLIGRAM DAILY; SCHEDULE B / TITRATING
     Route: 048
     Dates: start: 20170418
  2. NORTHERA [Suspect]
     Active Substance: DROXIDOPA
     Dosage: 600 MILLIGRAM DAILY;
     Route: 048
     Dates: start: 20170421
  3. OXYBUTYNIN. [Suspect]
     Active Substance: OXYBUTYNIN CHLORIDE
     Indication: BLADDER DISORDER
     Dates: start: 201704
  4. NORTHERA [Suspect]
     Active Substance: DROXIDOPA
     Dosage: SCHEDULE B / TITRATING
     Dates: start: 20170418

REACTIONS (10)
  - Malaise [Unknown]
  - Syncope [Unknown]
  - Feeling abnormal [Unknown]
  - Insomnia [Unknown]
  - Blood pressure systolic increased [Unknown]
  - Visual impairment [Unknown]
  - Gait disturbance [Unknown]
  - Dizziness [Unknown]
  - Nausea [Unknown]
  - Limb discomfort [Unknown]

NARRATIVE: CASE EVENT DATE: 2017
